FAERS Safety Report 13847103 (Version 1)
Quarter: 2017Q3

REPORT INFORMATION
  Report Type: Spontaneous
  Country: FR (occurrence: FR)
  Receive Date: 20170808
  Receipt Date: 20170808
  Transmission Date: 20171127
  Serious: Yes (Hospitalization)
  Sender: FDA-Public Use
  Company Number: FR-PFIZER INC-2017333214

PATIENT
  Age: 56 Year
  Sex: Female

DRUGS (2)
  1. ZOLPIDEM [Suspect]
     Active Substance: ZOLPIDEM\ZOLPIDEM TARTRATE
     Dosage: 12 DF, SINGLE
     Route: 048
     Dates: start: 20170617, end: 20170617
  2. XANAX [Suspect]
     Active Substance: ALPRAZOLAM
     Dosage: 22 DF, SINGLE
     Route: 048
     Dates: start: 20170617, end: 20170617

REACTIONS (2)
  - Toxicity to various agents [Recovered/Resolved]
  - Suicide attempt [Unknown]

NARRATIVE: CASE EVENT DATE: 20170617
